FAERS Safety Report 9471794 (Version 1)
Quarter: 2013Q3

REPORT INFORMATION
  Report Type: Spontaneous
  Country: US (occurrence: None)
  Receive Date: 20130819
  Receipt Date: 20130819
  Transmission Date: 20140515
  Serious: Yes (Other)
  Sender: FDA-Public Use
  Company Number: AUR-APL-2013-06667

PATIENT
  Age: 2 Year
  Sex: Male
  Weight: 13.5 kg

DRUGS (1)
  1. LAMOTRIGINE (LAMOTRIGINE) [Suspect]
     Indication: CONVULSION
     Dosage: 25 MG TABLET X21

REACTIONS (7)
  - Agitation [None]
  - Crying [None]
  - Myoclonus [None]
  - Toxicity to various agents [None]
  - Hypotonia [None]
  - Accidental exposure to product by child [None]
  - Incorrect dose administered [None]
